FAERS Safety Report 12432538 (Version 1)
Quarter: 2016Q2

REPORT INFORMATION
  Report Type: Spontaneous
  Country: US (occurrence: US)
  Receive Date: 20160603
  Receipt Date: 20160603
  Transmission Date: 20160815
  Serious: No
  Sender: FDA-Public Use
  Company Number: US-TEVA-659230ACC

PATIENT
  Age: 34 Year
  Sex: Female
  Weight: 54.03 kg

DRUGS (1)
  1. PLAN B ONE-STEP [Suspect]
     Active Substance: LEVONORGESTREL
     Indication: POST COITAL CONTRACEPTION
     Dates: start: 20160504, end: 20160504

REACTIONS (2)
  - Vaginal haemorrhage [Not Recovered/Not Resolved]
  - Micturition urgency [Recovered/Resolved]

NARRATIVE: CASE EVENT DATE: 20160504
